FAERS Safety Report 5741067-8 (Version None)
Quarter: 2008Q2

REPORT INFORMATION
  Report Type: 
  Country: None (occurrence: None)
  Receive Date: 20080516
  Receipt Date: 20080505
  Transmission Date: 20081010
  Serious: Yes (Other)
  Sender: FDA-Public Use
  Company Number: US-PFIZER INC-2008039739

PATIENT
  Sex: Female
  Weight: 71.2 kg

DRUGS (3)
  1. LYRICA [Suspect]
     Indication: FIBROMYALGIA
  2. AMITRIPTYLINE HCL [Concomitant]
     Indication: POST-TRAUMATIC STRESS DISORDER
  3. CLONAZEPAM [Concomitant]
     Indication: POST-TRAUMATIC STRESS DISORDER

REACTIONS (3)
  - HEADACHE [None]
  - HYPERTENSION [None]
  - PAIN [None]
